FAERS Safety Report 18732438 (Version 1)
Quarter: 2021Q1

REPORT INFORMATION
  Report Type: Spontaneous
  Country: CA (occurrence: CA)
  Receive Date: 20210113
  Receipt Date: 20210113
  Transmission Date: 20210419
  Serious: Yes (Other)
  Sender: FDA-Public Use
  Company Number: CA-AUROBINDO-AUR-APL-2021-001297

PATIENT
  Age: 69 Year
  Sex: Female

DRUGS (2)
  1. VENLAFAXINE EXTENDED RELEASE CAPSULE [Suspect]
     Active Substance: VENLAFAXINE HYDROCHLORIDE
     Indication: PRODUCT USED FOR UNKNOWN INDICATION
     Dosage: 37.5 MILLIGRAM
     Route: 048
  2. VENLAFAXINE [Suspect]
     Active Substance: VENLAFAXINE HYDROCHLORIDE
     Indication: PRODUCT USED FOR UNKNOWN INDICATION
     Dosage: 225 MILLIGRAM, ONCE A DAY
     Route: 048

REACTIONS (6)
  - Dyspepsia [Unknown]
  - Flatulence [Unknown]
  - Foreign body in throat [Unknown]
  - Abdominal pain upper [Unknown]
  - Poor quality sleep [Unknown]
  - Product size issue [Unknown]
